FAERS Safety Report 5386371-0 (Version None)
Quarter: 2007Q3

REPORT INFORMATION
  Report Type: 
  Country: None (occurrence: None)
  Receive Date: 20070710
  Receipt Date: 20070625
  Transmission Date: 20080115
  Serious: Yes (Death)
  Sender: FDA-Public Use
  Company Number: 2007001094

PATIENT
  Age: 74 Year
  Sex: Female

DRUGS (1)
  1. ERLOTINIB [Suspect]
     Indication: NON-SMALL CELL LUNG CANCER
     Dosage: QD, ORAL
     Route: 048
     Dates: start: 20061115, end: 20070422

REACTIONS (4)
  - DEHYDRATION [None]
  - DIARRHOEA [None]
  - ORAL INTAKE REDUCED [None]
  - RASH [None]
